FAERS Safety Report 10190147 (Version 1)
Quarter: 2014Q2

REPORT INFORMATION
  Report Type: Spontaneous
  Country: US (occurrence: US)
  Receive Date: 20140522
  Receipt Date: 20140522
  Transmission Date: 20141212
  Serious: Yes (Other)
  Sender: FDA-Public Use
  Company Number: US-ELI_LILLY_AND_COMPANY-US201405003724

PATIENT
  Age: 66 Year
  Sex: Female

DRUGS (10)
  1. CYMBALTA [Suspect]
     Indication: DEPRESSION
     Dosage: 60 MG, QD
     Route: 065
     Dates: start: 2004
  2. CYMBALTA [Suspect]
     Dosage: 120 MG, EACH EVENING
     Route: 065
  3. DULOXETINE HYDROCHLORIDE [Suspect]
     Indication: DEPRESSION
     Dosage: 120 MG, EACH EVENING
     Route: 065
  4. CLOPIDOGREL [Concomitant]
     Dosage: 75 MG, QD
  5. METOPROLOL [Concomitant]
     Indication: HYPERTENSION
     Dosage: 50 MG, BID
  6. LEVOTHYROXINE [Concomitant]
     Indication: THYROID DISORDER
     Dosage: 88 UG, QD
  7. FUROSEMIDE [Concomitant]
     Dosage: 40 MG, QD
  8. OMEPRAZOLE [Concomitant]
     Indication: GASTROOESOPHAGEAL REFLUX DISEASE
     Dosage: 40 MG, UNKNOWN
  9. TOPIRAMATE [Concomitant]
     Indication: MIGRAINE
     Dosage: 50 MG, BID
  10. PRAVASTATIN [Concomitant]
     Indication: HYPERLIPIDAEMIA
     Dosage: 40 MG, EACH EVENING

REACTIONS (6)
  - Transient ischaemic attack [Unknown]
  - Type 2 diabetes mellitus [Unknown]
  - Chronic obstructive pulmonary disease [Unknown]
  - Drug ineffective [Unknown]
  - Back pain [Unknown]
  - Memory impairment [Unknown]
